FAERS Safety Report 6726637-2 (Version None)
Quarter: 2010Q2

REPORT INFORMATION
  Report Type: 
  Country: None (occurrence: None)
  Receive Date: 20100514
  Receipt Date: 20100506
  Transmission Date: 20101027
  Serious: Yes (Hospitalization, Other)
  Sender: FDA-Public Use
  Company Number: BR-ABBOTT-09P-020-0607085-00

PATIENT
  Sex: Female
  Weight: 62 kg

DRUGS (11)
  1. HUMIRA [Suspect]
     Indication: RHEUMATOID ARTHRITIS
     Route: 058
     Dates: start: 20071101
  2. HUMIRA [Suspect]
  3. METHOTREXATE [Concomitant]
     Indication: MUSCULOSKELETAL PAIN
     Route: 058
     Dates: start: 20090101
  4. DIOVAN [Concomitant]
     Indication: HYPERTENSION
     Dosage: FORM STRENGTH: 165MG
     Route: 048
     Dates: start: 20080901
  5. DIOVAN [Concomitant]
     Indication: BLOOD PRESSURE
  6. MODURETIC 5-50 [Concomitant]
     Indication: HYPERTENSION
     Route: 048
     Dates: start: 20091001
  7. PREDNISONE [Concomitant]
     Indication: MUSCULOSKELETAL PAIN
     Route: 048
     Dates: start: 19860101
  8. PREDNISONE [Concomitant]
     Indication: RHEUMATOID ARTHRITIS
  9. OMEPRAZOLE [Concomitant]
     Indication: GASTRIC DISORDER
     Route: 048
     Dates: start: 20070101
  10. ATENOLOL [Concomitant]
     Indication: CARDIOVASCULAR DISORDER
     Route: 048
     Dates: start: 20091101
  11. LORATADINE [Concomitant]
     Indication: HYPERSENSITIVITY
     Route: 048

REACTIONS (21)
  - ARTHRALGIA [None]
  - ARTHROPATHY [None]
  - CEREBRAL ISCHAEMIA [None]
  - DIZZINESS [None]
  - FURUNCLE [None]
  - GAIT DISTURBANCE [None]
  - HYPERTENSIVE CRISIS [None]
  - INFLUENZA [None]
  - INJECTION SITE ERYTHEMA [None]
  - INJECTION SITE HYPERSENSITIVITY [None]
  - INJECTION SITE PAIN [None]
  - INJECTION SITE PRURITUS [None]
  - INSOMNIA [None]
  - MALAISE [None]
  - ORAL DISORDER [None]
  - OSTEOPOROSIS [None]
  - PAIN [None]
  - PNEUMONIA [None]
  - PRURITUS GENERALISED [None]
  - SPEECH DISORDER [None]
  - WEIGHT INCREASED [None]
